FAERS Safety Report 11368683 (Version 1)
Quarter: 2015Q3

REPORT INFORMATION
  Report Type: Spontaneous
  Country: US (occurrence: US)
  Receive Date: 20150812
  Receipt Date: 20150812
  Transmission Date: 20151125
  Serious: No
  Sender: FDA-Public Use
  Company Number: US-ASTRAZENECA-2015SE75315

PATIENT
  Age: 964 Month
  Sex: Female
  Weight: 56.7 kg

DRUGS (8)
  1. TUDORZA PRESSAIR [Suspect]
     Active Substance: ACLIDINIUM BROMIDE
     Indication: BRONCHIECTASIS
     Route: 055
     Dates: start: 201502
  2. OMEPRAZOLE. [Suspect]
     Active Substance: OMEPRAZOLE
     Indication: ANTACID THERAPY
     Route: 048
  3. TUDORZA PRESSAIR [Suspect]
     Active Substance: ACLIDINIUM BROMIDE
     Indication: ASTHMA
     Route: 055
     Dates: start: 201502
  4. ADVAIR DISCUS [Concomitant]
     Indication: ASTHMA
     Route: 055
  5. ADVAIR DISCUS [Concomitant]
     Indication: BRONCHIECTASIS
     Route: 055
  6. DOXICYCLINE [Concomitant]
     Indication: BRONCHIECTASIS
     Dosage: DAILY
  7. COUMADIN [Concomitant]
     Active Substance: WARFARIN SODIUM
     Dosage: DAILY
     Route: 048
  8. ENALAPRIL [Concomitant]
     Active Substance: ENALAPRIL
     Indication: BLOOD PRESSURE ABNORMAL
     Dosage: DAILY

REACTIONS (4)
  - Drug ineffective [Not Recovered/Not Resolved]
  - Product quality issue [Unknown]
  - Dyspnoea [Not Recovered/Not Resolved]
  - Drug dose omission [Not Recovered/Not Resolved]

NARRATIVE: CASE EVENT DATE: 201502
